FAERS Safety Report 8354986-3 (Version None)
Quarter: 2012Q2

REPORT INFORMATION
  Report Type: 
  Country: None (occurrence: None)
  Receive Date: 20120510
  Receipt Date: 20120424
  Transmission Date: 20120825
  Serious: Yes (Other)
  Sender: FDA-Public Use
  Company Number: FK201201247

PATIENT
  Age: 49 Year
  Sex: Male

DRUGS (2)
  1. MICAFUNGIN (MICAFUNGIN) [Suspect]
     Indication: GRAFT VERSUS HOST DISEASE
     Dosage: PER DAY
  2. METHYLPREDNISOLONE [Suspect]
     Indication: GRAFT VERSUS HOST DISEASE
     Dosage: 1000 MG, DAILY, ,PER DAY

REACTIONS (2)
  - STOMATOCOCCAL INFECTION [None]
  - FUNGAEMIA [None]
